FAERS Safety Report 23455782 (Version 2)
Quarter: 2024Q1

REPORT INFORMATION
  Report Type: Spontaneous
  Country: US (occurrence: US)
  Receive Date: 20240130
  Receipt Date: 20240130
  Transmission Date: 20240410
  Serious: No
  Sender: FDA-Public Use
  Company Number: US-STRIDES ARCOLAB LIMITED-2023SP014850

PATIENT
  Age: 60 Year
  Sex: Male

DRUGS (10)
  1. METHOTREXATE [Suspect]
     Active Substance: METHOTREXATE
     Indication: Rosai-Dorfman syndrome
     Dosage: 25 MILLIGRAM/ WEEK (CREAM)
     Route: 048
  2. METHOTREXATE [Suspect]
     Active Substance: METHOTREXATE
     Indication: Skin disorder
  3. TRIAMCINOLONE [Concomitant]
     Active Substance: TRIAMCINOLONE
     Indication: Rosai-Dorfman syndrome
     Dosage: UNK, 20 MG/ML TO THE RIGHT CHEEK NODULE
     Route: 026
  4. TRIAMCINOLONE [Concomitant]
     Active Substance: TRIAMCINOLONE
     Indication: Skin disorder
  5. IMIQUIMOD [Concomitant]
     Active Substance: IMIQUIMOD
     Indication: Rosai-Dorfman syndrome
     Dosage: UNK, INITIALLY FOR 6 WEEKS; TREATMENT REMAINED CONTINUED FOR 3 MONTHS
     Route: 061
  6. IMIQUIMOD [Concomitant]
     Active Substance: IMIQUIMOD
     Indication: Skin disorder
  7. SIROLIMUS [Concomitant]
     Active Substance: SIROLIMUS
     Indication: Rosai-Dorfman syndrome
     Dosage: UNK, FOR 1 MONTH
     Route: 065
  8. SIROLIMUS [Concomitant]
     Active Substance: SIROLIMUS
     Indication: Skin disorder
  9. TRAMETINIB [Concomitant]
     Active Substance: TRAMETINIB
     Indication: Rosai-Dorfman syndrome
     Dosage: UNK, BID, (COMPOUNDED WITH WITH A LIPODERM BASE )
     Route: 065
  10. TRAMETINIB [Concomitant]
     Active Substance: TRAMETINIB
     Indication: Skin disorder

REACTIONS (1)
  - Off label use [Unknown]
